FAERS Safety Report 7407126-9 (Version None)
Quarter: 2011Q2

REPORT INFORMATION
  Report Type: 
  Country: None (occurrence: None)
  Receive Date: 20110411
  Receipt Date: 20110404
  Transmission Date: 20111010
  Serious: Yes (Hospitalization)
  Sender: FDA-Public Use
  Company Number: US-B.I. PHARMACEUTICALS,INC./RIDGEFIELD-2011-BP-09955BP

PATIENT
  Age: 74 Year
  Sex: Male

DRUGS (5)
  1. ASPIRIN [Concomitant]
     Indication: ATRIAL FIBRILLATION
     Dosage: 325 MG
  2. VITAMINS [Concomitant]
     Indication: SUPPLEMENTATION THERAPY
  3. INSULIN [Concomitant]
     Indication: DIABETES MELLITUS
  4. PRADAXA [Suspect]
     Indication: ATRIAL FIBRILLATION
     Dosage: 300 MG
     Route: 048
     Dates: start: 20110108, end: 20110301
  5. QUINAPRIL [Concomitant]
     Indication: HYPERTENSION

REACTIONS (4)
  - HAEMOGLOBIN DECREASED [None]
  - FATIGUE [None]
  - HAEMORRHAGE [None]
  - HEART RATE DECREASED [None]
